FAERS Safety Report 9701123 (Version 1)
Quarter: 2013Q4

REPORT INFORMATION
  Report Type: Spontaneous
  Country: JP (occurrence: JP)
  Receive Date: 20131121
  Receipt Date: 20131121
  Transmission Date: 20140711
  Serious: Yes (Other)
  Sender: FDA-Public Use
  Company Number: JP-SA-2013SA117085

PATIENT
  Sex: Male

DRUGS (3)
  1. PLAVIX [Suspect]
     Indication: CAROTID ARTERY STENOSIS
     Route: 048
     Dates: start: 20130822
  2. METHYCOBAL [Concomitant]
     Indication: DIABETES MELLITUS
     Route: 048
  3. KINEDAK [Concomitant]
     Indication: DIABETES MELLITUS
     Route: 048

REACTIONS (3)
  - Peripheral artery stenosis [Unknown]
  - Local swelling [Unknown]
  - Hypoaesthesia [Unknown]
